FAERS Safety Report 6168699-X (Version None)
Quarter: 2009Q2

REPORT INFORMATION
  Report Type: 
  Country: None (occurrence: None)
  Receive Date: 20090427
  Receipt Date: 20090417
  Transmission Date: 20091009
  Serious: Yes (Hospitalization, Disabling, Other)
  Sender: FDA-Public Use
  Company Number: BR-PFIZER INC-2008066321

PATIENT

DRUGS (3)
  1. CELEBRA [Suspect]
     Indication: INFLAMMATION
     Route: 048
     Dates: start: 20080805
  2. CARBAMAZEPINE [Concomitant]
     Indication: EPILEPSY
     Dates: start: 20040101
  3. PHENOBARBITAL [Concomitant]
     Indication: EPILEPSY
     Dates: start: 20040101

REACTIONS (14)
  - ANOREXIA [None]
  - BURNING SENSATION [None]
  - CRYING [None]
  - DRUG INEFFECTIVE [None]
  - EYE BURNS [None]
  - FORMICATION [None]
  - LACRIMATION INCREASED [None]
  - PAIN [None]
  - PERIPHERAL PARALYSIS [None]
  - RENAL PAIN [None]
  - SENSORY DISTURBANCE [None]
  - SPINAL DISORDER [None]
  - SWELLING FACE [None]
  - VISION BLURRED [None]
